FAERS Safety Report 7581775-X (Version None)
Quarter: 2011Q2

REPORT INFORMATION
  Report Type: 
  Country: None (occurrence: None)
  Receive Date: 20110629
  Receipt Date: 20110620
  Transmission Date: 20111010
  Serious: Yes (Hospitalization, Other)
  Sender: FDA-Public Use
  Company Number: US-ELI_LILLY_AND_COMPANY-US201106005656

PATIENT
  Sex: Female

DRUGS (1)
  1. FORTEO [Suspect]
     Indication: OSTEOPOROSIS
     Dosage: UNK
     Dates: start: 20100701, end: 20101231

REACTIONS (8)
  - TRANSMISSION OF AN INFECTIOUS AGENT VIA A MEDICINAL PRODUCT [None]
  - FEAR [None]
  - PAIN [None]
  - ANXIETY [None]
  - EMOTIONAL DISTRESS [None]
  - ABDOMINAL INJURY [None]
  - DEFORMITY [None]
  - GENERAL PHYSICAL CONDITION ABNORMAL [None]
